FAERS Safety Report 8437548-9 (Version None)
Quarter: 2012Q2

REPORT INFORMATION
  Report Type: 
  Country: None (occurrence: None)
  Receive Date: 20120614
  Receipt Date: 20120417
  Transmission Date: 20120825
  Serious: No
  Sender: FDA-Public Use
  Company Number: US-AMGEN-USASP2011040450

PATIENT
  Age: 76 Year
  Sex: Male
  Weight: 75.737 kg

DRUGS (16)
  1. LUPRON [Concomitant]
     Dosage: UNK
  2. ALBUTEROL [Concomitant]
     Dosage: UNK
  3. ATIVAN [Concomitant]
     Dosage: UNK
  4. MS CONTIN [Concomitant]
     Dosage: UNK
  5. GLIPIZIDE [Concomitant]
     Dosage: UNK
  6. LORAZEPAM [Concomitant]
     Dosage: UNK
  7. CYMBALTA [Concomitant]
     Dosage: UNK
  8. CARBIDOPA AND LEVODOPA [Concomitant]
     Dosage: UNK
  9. ASMANEX TWISTHALER [Concomitant]
     Dosage: UNK
  10. MORPHINE SULFATE [Concomitant]
     Dosage: 1 MG, UNK
  11. XGEVA [Suspect]
     Indication: METASTASES TO BONE
     Dosage: 120 MG, Q4WK
     Dates: start: 20110803
  12. NEXIUM [Concomitant]
     Dosage: UNK
  13. COMPAZINE [Concomitant]
     Dosage: UNK
  14. OXYCODONE HCL [Concomitant]
     Dosage: UNK
  15. IMDUR [Concomitant]
     Dosage: UNK
  16. CARTIA XT [Concomitant]
     Dosage: UNK

REACTIONS (4)
  - DISEASE PROGRESSION [None]
  - SOMNOLENCE [None]
  - OVERDOSE [None]
  - FATIGUE [None]
